FAERS Safety Report 9843188 (Version 1)
Quarter: 2013Q4

REPORT INFORMATION
  Report Type: Spontaneous
  Country: US (occurrence: None)
  Receive Date: 20131219
  Receipt Date: 20131219
  Transmission Date: 20140711
  Serious: Yes (Other)
  Sender: FDA-Public Use
  Company Number: 163-20785-13030264

PATIENT
  Age: 76 Year
  Sex: Male
  Weight: 72.6 kg

DRUGS (11)
  1. THALOMID (THALIDOMIDE) (50 MILLIGRAM, CAPSULES) [Suspect]
     Indication: PLASMA CELL MYELOMA
     Route: 048
     Dates: start: 201210
  2. BACTRIM [Concomitant]
  3. CARBAMAZEPINE [Concomitant]
  4. DEXAMETHASONE [Concomitant]
  5. FAMCICLOVIR [Concomitant]
  6. MAGNESIUM [Concomitant]
  7. NEXIUM (ESOMEPRAZOLE) [Concomitant]
  8. TAZTIA XT (DILTIAZEM HYDROCHLORIDE) [Concomitant]
  9. WARFARIN SODIUM [Concomitant]
  10. MORPHINE SULFATE [Concomitant]
  11. HYDROMORPHONE [Concomitant]

REACTIONS (7)
  - Chest pain [None]
  - Dyspnoea [None]
  - Muscle spasms [None]
  - Back pain [None]
  - Burning sensation [None]
  - Irritability [None]
  - Adverse drug reaction [None]
